FAERS Safety Report 16249618 (Version 2)
Quarter: 2019Q3

REPORT INFORMATION
  Report Type: Spontaneous
  Country: RU (occurrence: RU)
  Receive Date: 20190429
  Receipt Date: 20190730
  Transmission Date: 20191004
  Serious: Yes (Death, Life-Threatening)
  Sender: FDA-Public Use
  Company Number: RU-B.I. PHARMACEUTICALS,INC./RIDGEFIELD-2019-BI-019335

PATIENT
  Age: 42 Year
  Sex: Male
  Weight: 168 kg

DRUGS (4)
  1. PRADAXA [Suspect]
     Active Substance: DABIGATRAN ETEXILATE MESYLATE
     Indication: PULMONARY ARTERY THROMBOSIS
     Route: 048
     Dates: start: 20190315, end: 20190411
  2. DIGOXIN. [Concomitant]
     Active Substance: DIGOXIN
     Indication: CARDIAC FAILURE CHRONIC
     Route: 048
     Dates: start: 20190310, end: 20190412
  3. VEROSPIRONE [Concomitant]
     Active Substance: SPIRONOLACTONE
     Indication: CARDIAC FAILURE CHRONIC
     Route: 048
     Dates: start: 20190310, end: 20190412
  4. FUROSEMIDE. [Concomitant]
     Active Substance: FUROSEMIDE
     Indication: CARDIAC FAILURE CHRONIC
     Dosage: UNIT AND DAILY DOSE: 60
     Route: 042
     Dates: start: 20190310, end: 20190412

REACTIONS (4)
  - Pulmonary artery thrombosis [Fatal]
  - Gastrointestinal haemorrhage [Fatal]
  - Gastrointestinal haemorrhage [Recovered/Resolved]
  - Lymphoma [Fatal]

NARRATIVE: CASE EVENT DATE: 20190411
